FAERS Safety Report 8790690 (Version 1)
Quarter: 2012Q4

REPORT INFORMATION
  Report Type: Spontaneous
  Country: US (occurrence: None)
  Receive Date: 20120912
  Receipt Date: 20120912
  Transmission Date: 20130627
  Serious: Yes (Hospitalization)
  Sender: FDA-Public Use
  Company Number: None

PATIENT
  Age: 57 Year
  Sex: Male
  Weight: 137 kg

DRUGS (2)
  1. INSULIN [Suspect]
     Indication: DIABETES MELLITUS
     Dosage: 54 Units BID SQ
     Route: 058
     Dates: start: 20121114, end: 20120131
  2. METOPROLOL [Suspect]
     Indication: HYPERTENSION
     Route: 048
     Dates: start: 20111018, end: 20120118

REACTIONS (6)
  - Bradycardia [None]
  - Hypoglycaemia [None]
  - Mental status changes [None]
  - Drug clearance decreased [None]
  - Blood pressure diastolic decreased [None]
  - Fall [None]
